FAERS Safety Report 4982718-5 (Version None)
Quarter: 2006Q2

REPORT INFORMATION
  Report Type: 
  Country: None (occurrence: None)
  Receive Date: 20060425
  Receipt Date: 20051003
  Transmission Date: 20061013
  Serious: Yes (Hospitalization, Other)
  Sender: FDA-Public Use
  Company Number: US-MERCK-0510USA02624

PATIENT
  Age: 49 Year
  Sex: Male
  Weight: 91 kg

DRUGS (3)
  1. VIOXX [Suspect]
     Indication: OSTEOARTHRITIS
     Route: 048
     Dates: start: 20021031, end: 20040801
  2. VIOXX [Suspect]
     Indication: ARTHRITIS
     Route: 048
     Dates: start: 20021031, end: 20040801
  3. ASPIRIN [Concomitant]
     Route: 065

REACTIONS (21)
  - ANGINA UNSTABLE [None]
  - ANXIETY [None]
  - CRANIOPHARYNGIOMA [None]
  - DEPRESSION [None]
  - DYSPEPSIA [None]
  - EAR INFECTION [None]
  - EXOSTOSIS [None]
  - FALL [None]
  - HYPOGONADISM [None]
  - INSOMNIA [None]
  - ISCHAEMIC STROKE [None]
  - JOINT SPRAIN [None]
  - LOCALISED INFECTION [None]
  - OBESITY [None]
  - OESOPHAGEAL ULCER [None]
  - OTITIS MEDIA ACUTE [None]
  - PAIN [None]
  - PAIN IN EXTREMITY [None]
  - TOOTH ABSCESS [None]
  - UPPER RESPIRATORY TRACT INFECTION [None]
  - WOUND DEHISCENCE [None]
